FAERS Safety Report 5288163-X (Version None)
Quarter: 2007Q1

REPORT INFORMATION
  Report Type: 
  Country: None (occurrence: None)
  Receive Date: 20070116
  Receipt Date: 20061019
  Transmission Date: 20070707
  Serious: No
  Sender: FDA-Public Use
  Company Number: 2006SP003751

PATIENT
  Age: 72 Year
  Sex: Male
  Weight: 112.4921 kg

DRUGS (5)
  1. LUNESTA [Suspect]
     Indication: INSOMNIA
     Dosage: 3 MG;1X;ORAL
     Route: 048
     Dates: start: 20061018
  2. DEXAMETHASONE 0.5MG TAB [Concomitant]
  3. RESTORIL [Concomitant]
  4. ZANTAC [Concomitant]
  5. DIPHENHYDRAMINE HCL [Concomitant]

REACTIONS (2)
  - DRUG INEFFECTIVE [None]
  - INSOMNIA [None]
